FAERS Safety Report 23082515 (Version 1)
Quarter: 2023Q4

REPORT INFORMATION
  Report Type: Spontaneous
  Country: FR (occurrence: FR)
  Receive Date: 20231019
  Receipt Date: 20231019
  Transmission Date: 20240109
  Serious: Yes (Hospitalization)
  Sender: FDA-Public Use
  Company Number: None

PATIENT
  Age: 71 Year
  Sex: Male
  Weight: 85 kg

DRUGS (4)
  1. CISPLATIN [Suspect]
     Active Substance: CISPLATIN
     Indication: Transitional cell carcinoma
     Dosage: 136,13MG?1 MG/ML
     Dates: start: 20230912, end: 20230912
  2. DOXORUBICIN [Concomitant]
     Active Substance: DOXORUBICIN
     Indication: Transitional cell carcinoma
     Dosage: 58,28MG?2 MG/ML
     Dates: start: 20230912, end: 20230912
  3. VINBLASTINE SULFATE [Concomitant]
     Active Substance: VINBLASTINE SULFATE
     Indication: Transitional cell carcinoma
     Dosage: 5.26MG? 10 MG, POWDER FOR SOLUTION FOR INJECTION I.V
     Dates: start: 20230912, end: 20230912
  4. METHOTREXATE [Concomitant]
     Active Substance: METHOTREXATE
     Indication: Transitional cell carcinoma
     Dosage: 58MG?100 MG/ML
     Dates: start: 20230911, end: 20230911

REACTIONS (2)
  - Urticaria [Recovered/Resolved]
  - Pyrexia [Recovered/Resolved]

NARRATIVE: CASE EVENT DATE: 20230912
